FAERS Safety Report 4699498-3 (Version None)
Quarter: 2005Q2

REPORT INFORMATION
  Report Type: 
  Country: None (occurrence: None)
  Receive Date: 20050622
  Receipt Date: 20050608
  Transmission Date: 20051028
  Serious: Yes (Hospitalization)
  Sender: FDA-Public Use
  Company Number: 8010836

PATIENT
  Sex: Female

DRUGS (6)
  1. KEPPRA [Suspect]
     Indication: STATUS EPILEPTICUS
     Dosage: 4000 MG /D
  2. CARBAMAZEPINE [Suspect]
  3. PHENYTOIN [Suspect]
     Indication: STATUS EPILEPTICUS
  4. MIDAZOLAM HCL [Concomitant]
  5. PROPOFOL [Concomitant]
  6. FRISIUM [Concomitant]

REACTIONS (7)
  - CHOLESTASIS [None]
  - HEPATIC FAILURE [None]
  - MULTI-ORGAN FAILURE [None]
  - SEDATION [None]
  - SEPSIS [None]
  - STATUS EPILEPTICUS [None]
  - THERAPY NON-RESPONDER [None]
